FAERS Safety Report 20480428 (Version 2)
Quarter: 2022Q4

REPORT INFORMATION
  Report Type: Spontaneous
  Country: US (occurrence: US)
  Receive Date: 20220216
  Receipt Date: 20221101
  Transmission Date: 20230113
  Serious: Yes (Death, Hospitalization, Other)
  Sender: FDA-Public Use
  Company Number: US-PFIZER INC-202200269468

PATIENT
  Age: 90 Year
  Sex: Female

DRUGS (9)
  1. LABETALOL HYDROCHLORIDE [Suspect]
     Active Substance: LABETALOL HYDROCHLORIDE
     Dosage: UNK (INGESTION)
     Route: 048
  2. BUMETANIDE [Suspect]
     Active Substance: BUMETANIDE
     Dosage: UNK (INGESTION)
     Route: 048
  3. PHENYTOIN [Suspect]
     Active Substance: PHENYTOIN
     Dosage: UNK (INGESTION)
     Route: 048
  4. NIFEDIPINE [Suspect]
     Active Substance: NIFEDIPINE
     Dosage: UNK (INGESTION)
     Route: 048
  5. SPIRONOLACTONE [Suspect]
     Active Substance: SPIRONOLACTONE
     Dosage: UNK (INGESTION)
     Route: 048
  6. SERTRALINE HYDROCHLORIDE [Suspect]
     Active Substance: SERTRALINE HYDROCHLORIDE
     Dosage: UNK (INGESTION)
     Route: 048
  7. CLOPIDOGREL [Suspect]
     Active Substance: CLOPIDOGREL BISULFATE
     Dosage: UNK (INGESTION)
     Route: 048
  8. HYDRALAZINE [Suspect]
     Active Substance: HYDRALAZINE HYDROCHLORIDE
     Dosage: UNK (INGESTION)
     Route: 048
  9. ISOSORBIDE [Suspect]
     Active Substance: ISOSORBIDE
     Dosage: UNK (INGESTION)
     Route: 048

REACTIONS (3)
  - Medication error [Fatal]
  - Death [Fatal]
  - Off label use [Fatal]

NARRATIVE: CASE EVENT DATE: 20200101
